FAERS Safety Report 8231389-3 (Version None)
Quarter: 2012Q1

REPORT INFORMATION
  Report Type: 
  Country: None (occurrence: None)
  Receive Date: 20120320
  Receipt Date: 20120313
  Transmission Date: 20120608
  Serious: Yes (Hospitalization, Other)
  Sender: FDA-Public Use
  Company Number: 217020

PATIENT
  Age: 50 Year
  Sex: Male

DRUGS (1)
  1. INNOHEP [Suspect]
     Indication: PRODUCT USED FOR UNKNOWN INDICATION
     Dosage: 2500

REACTIONS (4)
  - ANAPHYLACTIC REACTION [None]
  - IMMEDIATE POST-INJECTION REACTION [None]
  - CREATININE RENAL CLEARANCE INCREASED [None]
  - DYSPNOEA [None]
